FAERS Safety Report 16064192 (Version 1)
Quarter: 2019Q1

REPORT INFORMATION
  Report Type: Spontaneous
  Country: ES (occurrence: ES)
  Receive Date: 20190312
  Receipt Date: 20190312
  Transmission Date: 20190418
  Serious: Yes (Death, Life-Threatening)
  Sender: FDA-Public Use
  Company Number: ES-MYLANLABS-2019M1022418

PATIENT
  Age: 76 Year
  Sex: Female

DRUGS (3)
  1. MORFINA                            /00036301/ [Suspect]
     Active Substance: MORPHINE
     Indication: ACUTE PULMONARY OEDEMA
     Dosage: 20 MILLIGRAM, QD,10 MG PUNTUALES EN 2 OCASIONES  A LO LARGO DEL D?A 07/08/2018
     Route: 042
     Dates: start: 20180807, end: 20180807
  2. LEVOFLOXACIN. [Suspect]
     Active Substance: LEVOFLOXACIN
     Indication: SEPSIS
     Dosage: UNK
     Route: 042
     Dates: start: 20180807, end: 20180808
  3. CEFTRIAXONA                        /00672201/ [Suspect]
     Active Substance: CEFTRIAXONE
     Indication: SEPSIS
     Dosage: UNK
     Route: 042
     Dates: start: 20180807, end: 20180808

REACTIONS (3)
  - Encephalopathy [Fatal]
  - Respiratory failure [Fatal]
  - Acute kidney injury [Fatal]

NARRATIVE: CASE EVENT DATE: 20180808
